FAERS Safety Report 7706663-7 (Version None)
Quarter: 2011Q3

REPORT INFORMATION
  Report Type: 
  Country: None (occurrence: None)
  Receive Date: 20110804
  Receipt Date: 20110622
  Transmission Date: 20111222
  Serious: No
  Sender: FDA-Public Use
  Company Number: 2011-09431

PATIENT
  Age: 64 Year
  Sex: Male
  Weight: 70.7 kg

DRUGS (1)
  1. RAPAFLO [Suspect]
     Indication: BENIGN PROSTATIC HYPERPLASIA
     Dosage: 8 MG, DAILY, ORAL
     Route: 048
     Dates: start: 20110610

REACTIONS (2)
  - NASAL CONGESTION [None]
  - EPISTAXIS [None]
